FAERS Safety Report 8098283-2 (Version None)
Quarter: 2012Q1

REPORT INFORMATION
  Report Type: 
  Country: None (occurrence: None)
  Receive Date: 20120128
  Receipt Date: 20110807
  Transmission Date: 20120608
  Serious: No
  Sender: FDA-Public Use
  Company Number: US-ABBOTT-11P-163-0844688-00

PATIENT
  Age: 27 Year
  Sex: Female

DRUGS (6)
  1. PREDNISONE TAB [Concomitant]
     Indication: CROHN'S DISEASE
  2. NORCO [Concomitant]
     Indication: PAIN
  3. PENTASA [Concomitant]
     Indication: CROHN'S DISEASE
  4. HUMIRA [Suspect]
     Indication: CROHN'S DISEASE
     Dates: start: 20110620
  5. BIFERA [Concomitant]
     Indication: MINERAL SUPPLEMENTATION
     Dosage: DAILY
  6. DEPLIN [Concomitant]
     Indication: DYSPEPSIA

REACTIONS (7)
  - ABDOMINAL PAIN UPPER [None]
  - LOCAL SWELLING [None]
  - URTICARIA [None]
  - INJECTION SITE SWELLING [None]
  - FATIGUE [None]
  - PHARYNGEAL OEDEMA [None]
  - DYSPNOEA [None]
